FAERS Safety Report 7365467-8 (Version None)
Quarter: 2011Q1

REPORT INFORMATION
  Report Type: 
  Country: None (occurrence: None)
  Receive Date: 20110316
  Receipt Date: 20110316
  Transmission Date: 20110831
  Serious: Yes (Life-Threatening)
  Sender: FDA-Public Use
  Company Number: None

PATIENT
  Age: 84 Year
  Sex: Female
  Weight: 74.8435 kg

DRUGS (2)
  1. DARVOCET [Suspect]
     Indication: ANALGESIC THERAPY
     Dosage: 100 MG
     Dates: start: 20080101, end: 20100901
  2. DARVOCET [Suspect]
     Indication: ANALGESIC THERAPY
     Dosage: 100 MG
     Dates: start: 20101014

REACTIONS (3)
  - MYOCARDIAL INFARCTION [None]
  - INSOMNIA [None]
  - MALAISE [None]
